FAERS Safety Report 12990833 (Version 1)
Quarter: 2016Q4

REPORT INFORMATION
  Report Type: Spontaneous
  Country: US (occurrence: US)
  Receive Date: 20161130
  Receipt Date: 20161130
  Transmission Date: 20170207
  Serious: Yes (Other)
  Sender: FDA-Public Use
  Company Number: None

PATIENT
  Age: 79 Year
  Sex: Female
  Weight: 42.7 kg

DRUGS (21)
  1. AMLODIPINE BESYLATE. [Concomitant]
     Active Substance: AMLODIPINE BESYLATE
  2. ZANTAC [Concomitant]
     Active Substance: RANITIDINE HYDROCHLORIDE
  3. CALTRATE MINIS [Concomitant]
  4. COZAAR [Concomitant]
     Active Substance: LOSARTAN POTASSIUM
  5. GABAPENTIN. [Concomitant]
     Active Substance: GABAPENTIN
  6. XANAX [Concomitant]
     Active Substance: ALPRAZOLAM
  7. SPIRIVA [Concomitant]
     Active Substance: TIOTROPIUM BROMIDE MONOHYDRATE
  8. TURMERIC [Concomitant]
     Active Substance: TURMERIC
  9. EXCEDRIN [Concomitant]
     Active Substance: ACETAMINOPHEN\ASPIRIN\CAFFEINE
  10. ACETAMINOPHEN. [Concomitant]
     Active Substance: ACETAMINOPHEN
  11. SINGULAIR [Concomitant]
     Active Substance: MONTELUKAST SODIUM
  12. VENTOLIN HFA [Concomitant]
     Active Substance: ALBUTEROL SULFATE
  13. ALBUTEROL. [Concomitant]
     Active Substance: ALBUTEROL
  14. OXYGEN. [Concomitant]
     Active Substance: OXYGEN
  15. MILK THISTLE [Concomitant]
     Active Substance: MILK THISTLE
  16. CAFFEINE. [Concomitant]
     Active Substance: CAFFEINE
  17. MUCINEX DM [Suspect]
     Active Substance: DEXTROMETHORPHAN HYDROBROMIDE\GUAIFENESIN
     Indication: LOWER RESPIRATORY TRACT CONGESTION
     Route: 048
     Dates: start: 20161126, end: 20161127
  18. MAGNESIUM [Concomitant]
     Active Substance: MAGNESIUM
  19. VITAMIN D3 [Concomitant]
     Active Substance: CHOLECALCIFEROL
  20. VEGAN MULTIVITAMIN [Concomitant]
  21. MIRAMAX POWDER [Concomitant]

REACTIONS (3)
  - Hallucination [None]
  - Sleep disorder [None]
  - Anger [None]

NARRATIVE: CASE EVENT DATE: 20161130
